FAERS Safety Report 24830047 (Version 1)
Quarter: 2025Q1

REPORT INFORMATION
  Report Type: Spontaneous
  Country: NO (occurrence: NO)
  Receive Date: 20250110
  Receipt Date: 20250110
  Transmission Date: 20250408
  Serious: Yes (Other)
  Sender: ROCHE
  Company Number: NO-ROCHE-10000174224

PATIENT
  Sex: Female

DRUGS (1)
  1. PHESGO [Suspect]
     Active Substance: HYALURONIDASE-ZZXF\PERTUZUMAB\TRASTUZUMAB
     Indication: Product used for unknown indication
     Route: 065

REACTIONS (8)
  - Product storage error [Unknown]
  - Syncope [Unknown]
  - Rash [Unknown]
  - Pain in jaw [Unknown]
  - Genital rash [Unknown]
  - Oral mucosal eruption [Unknown]
  - Anal rash [Unknown]
  - Loose tooth [Unknown]
